FAERS Safety Report 8431539-X (Version None)
Quarter: 2012Q2

REPORT INFORMATION
  Report Type: 
  Country: None (occurrence: None)
  Receive Date: 20120323
  Receipt Date: 20110711
  Transmission Date: 20120825
  Serious: Yes (Other)
  Sender: FDA-Public Use
  Company Number: 163-21880-11062715

PATIENT
  Age: 58 Year
  Sex: Female

DRUGS (4)
  1. CALCIUM CARBONATE [Concomitant]
  2. REVLIMID [Suspect]
     Indication: MYELODYSPLASTIC SYNDROME
     Dosage: 10 MG, X21 DAYS, PO
     Route: 048
     Dates: start: 20110601, end: 20110601
  3. ASPIRIN [Concomitant]
  4. MVT [Concomitant]

REACTIONS (4)
  - PRURITUS [None]
  - SWELLING FACE [None]
  - HEADACHE [None]
  - LOCAL SWELLING [None]
